FAERS Safety Report 12631354 (Version 2)
Quarter: 2016Q3

REPORT INFORMATION
  Report Type: Spontaneous
  Country: US (occurrence: US)
  Receive Date: 20160808
  Receipt Date: 20160808
  Transmission Date: 20161109
  Serious: Yes (Other)
  Sender: FDA-Public Use
  Company Number: US-BEH-2015053489

PATIENT
  Sex: Male
  Weight: 70 kg

DRUGS (12)
  1. SENNA [Concomitant]
     Active Substance: SENNA LEAF\SENNOSIDES\SENNOSIDES A AND B
     Route: 048
  2. LIDOCAINE PRILOCAINE [Concomitant]
     Active Substance: LIDOCAINE\PRILOCAINE
     Dosage: 2.5% AS DIRECTED
     Route: 061
  3. EPIPEN [Concomitant]
     Active Substance: EPINEPHRINE
     Indication: ANAPHYLACTIC REACTION
     Route: 030
  4. AMOXICILLIN. [Concomitant]
     Active Substance: AMOXICILLIN
     Route: 048
  5. HIZENTRA [Suspect]
     Active Substance: HUMAN IMMUNOGLOBULIN G
     Indication: HYPOGAMMAGLOBULINAEMIA
     Dosage: 2 GM 10 ML VIAL
     Route: 058
  6. CYTOTEC [Concomitant]
     Active Substance: MISOPROSTOL
     Route: 048
  7. CHILDRENS MOTRIN [Concomitant]
     Active Substance: IBUPROFEN
     Dosage: AS DIRECTED
     Route: 048
  8. FLINTSTONES COMPLETE [Concomitant]
     Route: 048
  9. DIPHENHYDRAMINE. [Concomitant]
     Active Substance: DIPHENHYDRAMINE
     Indication: ANAPHYLACTIC REACTION
     Route: 048
  10. MISOPROSTOL. [Concomitant]
     Active Substance: MISOPROSTOL
     Route: 048
  11. PRILOSEC [Concomitant]
     Active Substance: OMEPRAZOLE MAGNESIUM
     Route: 048
  12. MIRALAX [Concomitant]
     Active Substance: POLYETHYLENE GLYCOL 3350
     Dosage: 1 TABLESPOON
     Route: 048

REACTIONS (2)
  - Migraine [Unknown]
  - Sinusitis [Unknown]
